FAERS Safety Report 8829656 (Version 2)
Quarter: 2013Q1

REPORT INFORMATION
  Report Type: Spontaneous
  Country: FR (occurrence: None)
  Receive Date: 20121004
  Receipt Date: 20121026
  Transmission Date: 20140127
  Serious: Yes (Other)
  Sender: FDA-Public Use
  Company Number: 2012-4439

PATIENT
  Age: 70 Year
  Sex: Female

DRUGS (1)
  1. DYSPORT [Suspect]
     Indication: MUSCLE SPASTICITY
     Dates: start: 20120920, end: 20120920

REACTIONS (5)
  - Hyperthermia [None]
  - C-reactive protein increased [None]
  - General physical health deterioration [None]
  - Asthma [None]
  - Product quality issue [None]
